FAERS Safety Report 5370676-3 (Version None)
Quarter: 2007Q2

REPORT INFORMATION
  Report Type: 
  Country: None (occurrence: None)
  Receive Date: 20070618
  Receipt Date: 20060822
  Transmission Date: 20071010
  Serious: Yes (Hospitalization)
  Sender: FDA-Public Use
  Company Number: PHEH2006US10079

PATIENT
  Age: 90 Year
  Sex: Female
  Weight: 49 kg

DRUGS (6)
  1. GLEEVEC [Suspect]
     Indication: MYELOPROLIFERATIVE DISORDER
     Dosage: 300 MG, QD, ORAL
     Route: 048
     Dates: start: 20060717, end: 20060726
  2. HYDROCHLOROTHIAZIDE [Concomitant]
  3. ATENOLOL [Concomitant]
  4. ADALT (NIFEDIPINE) [Concomitant]
  5. POTASSIUM CHLORIDE [Concomitant]
  6. SIMVASTATIN [Concomitant]

REACTIONS (2)
  - BLOOD SODIUM DECREASED [None]
  - CONFUSIONAL STATE [None]
